FAERS Safety Report 5302582-4 (Version None)
Quarter: 2007Q2

REPORT INFORMATION
  Report Type: 
  Country: None (occurrence: None)
  Receive Date: 20070419
  Receipt Date: 20070410
  Transmission Date: 20071010
  Serious: Yes (Hospitalization, Other)
  Sender: FDA-Public Use
  Company Number: US-PFIZER INC-2006152803

PATIENT
  Sex: Female
  Weight: 54.4 kg

DRUGS (1)
  1. BEXTRA [Suspect]
     Indication: ARTHRITIS
     Dates: start: 20030220, end: 20040127

REACTIONS (3)
  - CEREBROVASCULAR ACCIDENT [None]
  - FEAR [None]
  - MYOCARDIAL INFARCTION [None]
